FAERS Safety Report 15797383 (Version 2)
Quarter: 2019Q1

REPORT INFORMATION
  Report Type: Spontaneous
  Country: US (occurrence: US)
  Receive Date: 20190108
  Receipt Date: 20190110
  Transmission Date: 20190417
  Serious: No
  Sender: FDA-Public Use
  Company Number: US-PFIZER INC-2019002163

PATIENT
  Age: 63 Year
  Sex: Female
  Weight: 90.7 kg

DRUGS (3)
  1. LYRICA [Suspect]
     Active Substance: PREGABALIN
     Indication: HYPOAESTHESIA
     Dosage: 150 MG, DAILY
     Route: 048
     Dates: start: 201812
  2. NALTREXONE [Suspect]
     Active Substance: NALTREXONE
     Indication: PAIN
     Dosage: 4.5 MG, 1X/DAY (ONE AND A HALF TABLETS BY MOUTH ONCE DAILY)
     Route: 048
     Dates: start: 20181226
  3. LYRICA [Suspect]
     Active Substance: PREGABALIN
     Indication: PARAESTHESIA

REACTIONS (4)
  - Chest pain [Unknown]
  - Myalgia [Not Recovered/Not Resolved]
  - Fall [Unknown]
  - Muscular weakness [Not Recovered/Not Resolved]

NARRATIVE: CASE EVENT DATE: 201812
